FAERS Safety Report 14266629 (Version 1)
Quarter: 2017Q4

REPORT INFORMATION
  Report Type: Spontaneous
  Country: JP (occurrence: JP)
  Receive Date: 20171211
  Receipt Date: 20171211
  Transmission Date: 20180321
  Serious: Yes (Other)
  Sender: FDA-Public Use
  Company Number: JP-SUN PHARMACEUTICAL INDUSTRIES LTD-2017R1-144483

PATIENT
  Age: 54 Year
  Sex: Male

DRUGS (9)
  1. VALPROATE [Concomitant]
     Active Substance: VALPROIC ACID
     Indication: BIPOLAR DISORDER
     Dosage: 600 MG, DAILY
  2. LITHIUM. [Interacting]
     Active Substance: LITHIUM
     Dosage: 1200 MG, DAILY
     Route: 065
  3. COFFEE [Interacting]
     Active Substance: ARABICA COFFEE BEAN\COFFEE BEAN
     Dosage: 10 CUPS PER DAY
     Route: 065
  4. RISPERIDONE. [Concomitant]
     Active Substance: RISPERIDONE
     Indication: BIPOLAR DISORDER
     Dosage: 5 MG, DAILY
  5. LITHIUM. [Interacting]
     Active Substance: LITHIUM
     Dosage: 1400 MG, DAILY
     Route: 065
  6. LITHIUM. [Interacting]
     Active Substance: LITHIUM
     Dosage: 600 MG, DAILY
     Route: 065
  7. LITHIUM. [Suspect]
     Active Substance: LITHIUM
     Indication: BIPOLAR DISORDER
     Dosage: 400 MG, DAILY
     Route: 065
  8. COFFEE [Interacting]
     Active Substance: ARABICA COFFEE BEAN\COFFEE BEAN
     Indication: PRODUCT USED FOR UNKNOWN INDICATION
     Dosage: 13-20 CUPS PER DAY
     Route: 065
  9. ARIPIPRAZOLE. [Concomitant]
     Active Substance: ARIPIPRAZOLE
     Indication: BIPOLAR DISORDER
     Dosage: 24 MG, DAILY

REACTIONS (2)
  - Food interaction [Recovering/Resolving]
  - Drug level decreased [Recovering/Resolving]
